FAERS Safety Report 10133495 (Version 1)
Quarter: 2014Q2

REPORT INFORMATION
  Report Type: Spontaneous
  Country: MY (occurrence: MY)
  Receive Date: 20140428
  Receipt Date: 20140428
  Transmission Date: 20141212
  Serious: Yes (Other)
  Sender: FDA-Public Use
  Company Number: MY-EISAI INC-E2090-03244-SPO-MY

PATIENT
  Age: 27 Year
  Sex: Male

DRUGS (3)
  1. ZONEGRAN [Suspect]
     Indication: PRODUCT USED FOR UNKNOWN INDICATION
     Dosage: UNKNOWN
     Route: 048
     Dates: end: 201404
  2. EPILIM [Concomitant]
     Route: 048
  3. KEPPRA [Concomitant]

REACTIONS (1)
  - Visual impairment [Unknown]
